APPROVED DRUG PRODUCT: REZIPRES
Active Ingredient: EPHEDRINE HYDROCHLORIDE
Strength: 47MG/5ML (9.4MG/ML)
Dosage Form/Route: SOLUTION;INTRAVENOUS
Application: N213536 | Product #003
Applicant: DR REDDYS LABORATORIES SA
Approved: Jun 14, 2021 | RLD: Yes | RS: No | Type: DISCN